FAERS Safety Report 8692452 (Version 4)
Quarter: 2015Q2

REPORT INFORMATION
  Report Type: Spontaneous
  Country: US (occurrence: US)
  Receive Date: 20120730
  Receipt Date: 20150521
  Transmission Date: 20150821
  Serious: Yes (Congenital Anomaly, Other)
  Sender: FDA-Public Use
  Company Number: US-ELI_LILLY_AND_COMPANY-US201207005177

PATIENT
  Sex: Female

DRUGS (6)
  1. PRENATAL VITAMINS                  /08195401/ [Concomitant]
  2. ZOVIRAX [Concomitant]
     Active Substance: ACYCLOVIR
     Indication: HERPES VIRUS INFECTION
  3. PRENATAL VITAMINS                  /08195401/ [Concomitant]
  4. PROZAC [Suspect]
     Active Substance: FLUOXETINE HYDROCHLORIDE
     Indication: DEPRESSION
     Route: 064
  5. PROZAC [Suspect]
     Active Substance: FLUOXETINE HYDROCHLORIDE
     Indication: DEPRESSION
     Route: 064
  6. ZOVIRAX [Concomitant]
     Active Substance: ACYCLOVIR
     Indication: HERPES VIRUS INFECTION

REACTIONS (6)
  - Congenital ureteric anomaly [Recovered/Resolved]
  - Atrial septal defect [Recovered/Resolved]
  - Hydronephrosis [Recovered/Resolved]
  - Foetal exposure during pregnancy [Recovered/Resolved]
  - Polyhydramnios [Unknown]
  - Large for dates baby [Unknown]
